FAERS Safety Report 5913775-7 (Version None)
Quarter: 2008Q4

REPORT INFORMATION
  Report Type: 
  Country: None (occurrence: None)
  Receive Date: 20081007
  Receipt Date: 20080926
  Transmission Date: 20090506
  Serious: No
  Sender: FDA-Public Use
  Company Number: 2008-184629-NL

PATIENT
  Age: 18 Year
  Sex: Male

DRUGS (1)
  1. MIRTAZAPINE [Suspect]
     Indication: DEPRESSION
     Dosage: 30 MG QD/15 MG ORAL
     Route: 048
     Dates: start: 20080922

REACTIONS (8)
  - AGGRESSION [None]
  - BLEPHAROSPASM [None]
  - ERYTHEMA [None]
  - HEADACHE [None]
  - IMPULSE-CONTROL DISORDER [None]
  - PHOTOSENSITIVITY REACTION [None]
  - SKIN EXFOLIATION [None]
  - SUICIDAL IDEATION [None]
